FAERS Safety Report 8591097-6 (Version None)
Quarter: 2012Q3

REPORT INFORMATION
  Report Type: 
  Country: None (occurrence: None)
  Receive Date: 20120813
  Receipt Date: 20120806
  Transmission Date: 20120928
  Serious: Yes (Other)
  Sender: FDA-Public Use
  Company Number: CHPA2012BR017694

PATIENT
  Age: 68 Year
  Sex: Female

DRUGS (1)
  1. ACETAMINOPHEN, ASPIRIN AND CAFFEINE [Suspect]
     Dosage: 2 DF DAILY, FOR 50 YEARS
     Route: 048

REACTIONS (3)
  - SPINAL DISORDER [None]
  - INTERVERTEBRAL DISC PROTRUSION [None]
  - FEMUR FRACTURE [None]
